FAERS Safety Report 7083235-1 (Version None)
Quarter: 2010Q4

REPORT INFORMATION
  Report Type: 
  Country: None (occurrence: None)
  Receive Date: 20101027
  Receipt Date: 20101012
  Transmission Date: 20110411
  Serious: Yes (Hospitalization, Other)
  Sender: FDA-Public Use
  Company Number: 1000015082

PATIENT
  Age: 59 Year
  Sex: Male
  Weight: 134 kg

DRUGS (4)
  1. ESCITALOPRAM OXALATE [Suspect]
     Indication: DEPRESSION
     Dosage: 20 MG (20 MG,1 IN 1 D),ORAL
     Route: 048
     Dates: start: 20100506, end: 20100525
  2. ESCITALOPRAM OXALATE [Suspect]
     Indication: DISEASE RECURRENCE
     Dosage: 20 MG (20 MG,1 IN 1 D),ORAL
     Route: 048
     Dates: start: 20100506, end: 20100525
  3. LYRICA [Suspect]
     Dosage: 75 MG (75 MG,1 IN 1 D),ORAL
     Route: 048
     Dates: end: 20100505
  4. LYRICA [Suspect]
     Dosage: 150 MG (50 MG,3 IN 1 D),ORAL
     Route: 048
     Dates: start: 20100506

REACTIONS (3)
  - CHOLANGITIS [None]
  - HEPATITIS [None]
  - PANCREATIC CARCINOMA [None]
